FAERS Safety Report 23049289 (Version 1)
Quarter: 2023Q4

REPORT INFORMATION
  Report Type: Spontaneous
  Country: FR (occurrence: FR)
  Receive Date: 20231010
  Receipt Date: 20231010
  Transmission Date: 20240110
  Serious: Yes (Other)
  Sender: FDA-Public Use
  Company Number: FR-ANIPHARMA-2023-FR-000163

PATIENT
  Age: 65 Year
  Sex: Female

DRUGS (3)
  1. CANDESARTAN CILEXETIL [Suspect]
     Active Substance: CANDESARTAN CILEXETIL
     Indication: Hypertension
     Dosage: 8 MG DAILY
     Route: 048
     Dates: start: 2013, end: 202306
  2. VENLAFAXINE HYDROCHLORIDE [Suspect]
     Active Substance: VENLAFAXINE HYDROCHLORIDE
     Dosage: 75 MG DAILY
     Route: 048
     Dates: start: 201907, end: 202306
  3. DIAZEPAM [Concomitant]
     Active Substance: DIAZEPAM
     Dosage: 3 TO 4CP/DAY
     Route: 065

REACTIONS (1)
  - Colitis microscopic [Unknown]

NARRATIVE: CASE EVENT DATE: 20190901
